FAERS Safety Report 8085821-9 (Version None)
Quarter: 2012Q1

REPORT INFORMATION
  Report Type: 
  Country: None (occurrence: None)
  Receive Date: 20120128
  Receipt Date: 20110608
  Transmission Date: 20120608
  Serious: No
  Sender: FDA-Public Use
  Company Number: US-ABBOTT-11P-163-0731373-00

PATIENT
  Sex: Male

DRUGS (5)
  1. ADVIL SINUS AND ALLERGY [Concomitant]
     Indication: ALLERGIC SINUSITIS
     Route: 048
  2. ZANTAC [Concomitant]
     Indication: ALLERGIC SINUSITIS
     Route: 048
  3. HUMIRA [Suspect]
     Indication: PSORIASIS
     Route: 058
     Dates: start: 20100101, end: 20110401
  4. HUMIRA [Suspect]
     Route: 058
     Dates: start: 20110526, end: 20110526
  5. HUMIRA [Suspect]
     Route: 058
     Dates: start: 20110608

REACTIONS (2)
  - DRUG DOSE OMISSION [None]
  - PSORIASIS [None]
